FAERS Safety Report 9533886 (Version 1)
Quarter: 2013Q2

REPORT INFORMATION
  Report Type: Spontaneous
  Country: US (occurrence: None)
  Receive Date: 20130423
  Receipt Date: 20130423
  Transmission Date: 20140414
  Serious: Yes (Hospitalization, Disabling)
  Sender: FDA-Public Use
  Company Number: 1209USA009048

PATIENT
  Age: 49 Year
  Sex: Female

DRUGS (1)
  1. TEMODAR ( TEMOZOLOMIDE) CAPSULE [Suspect]
     Indication: GLIOBLASTOMA MULTIFORME
     Dosage: 150 MG/M2, CAPSULE, CYCLICAL FOR THE FIRST 5 DAYS, ORAL

REACTIONS (1)
  - Pneumocystis jirovecii pneumonia [None]
